FAERS Safety Report 19055464 (Version 1)
Quarter: 2021Q1

REPORT INFORMATION
  Report Type: Report from Study
  Country: IT (occurrence: IT)
  Receive Date: 20210324
  Receipt Date: 20210324
  Transmission Date: 20210420
  Serious: Yes (Other)
  Sender: FDA-Public Use
  Company Number: IT-DSJP-DSE-2021-107717

PATIENT

DRUGS (3)
  1. EDOXABAN [Suspect]
     Active Substance: EDOXABAN TOSYLATE
     Indication: THROMBOSIS PROPHYLAXIS
     Dosage: UNK UNK, QD
     Route: 048
  2. EDOXABAN [Interacting]
     Active Substance: EDOXABAN TOSYLATE
     Indication: CHRONIC MYELOID LEUKAEMIA
  3. IMATINIB MESILATE [Interacting]
     Active Substance: IMATINIB MESYLATE
     Indication: CHRONIC MYELOID LEUKAEMIA
     Dosage: 400 MILLIGRAM, QD

REACTIONS (2)
  - Drug interaction [Unknown]
  - Renal failure [Unknown]
